FAERS Safety Report 16485264 (Version 2)
Quarter: 2020Q1

REPORT INFORMATION
  Report Type: Spontaneous
  Country: AT (occurrence: AT)
  Receive Date: 20190627
  Receipt Date: 20200316
  Transmission Date: 20200409
  Serious: Yes (Hospitalization)
  Sender: FDA-Public Use
  Company Number: PHHY2019AT142910

PATIENT
  Age: 40 Year
  Sex: Female
  Weight: 60 kg

DRUGS (10)
  1. LETROZOLE. [Suspect]
     Active Substance: LETROZOLE
     Indication: BREAST CANCER
     Dosage: 2.5 MG, QD (ONCE DAILY)
     Route: 048
     Dates: start: 20180426
  2. XGEVA [Suspect]
     Active Substance: DENOSUMAB
     Indication: HER-2 POSITIVE BREAST CANCER
     Dosage: 120 MG, UNK(MOST RECENT DOSE OF XGVEGA 19 MAR 2019, 29 NOV 2018)
     Route: 058
     Dates: start: 201611, end: 20190319
  3. PERTUZUMAB. [Suspect]
     Active Substance: PERTUZUMAB
     Indication: BREAST CANCER
     Dosage: MOST RECENT DOSE PRIOR TO THE EVENT: 22/NOV/2018
     Route: 042
     Dates: start: 201811, end: 20181122
  4. MIRANAX [Concomitant]
     Indication: PRODUCT USED FOR UNKNOWN INDICATION
     Dosage: UNK
     Route: 065
     Dates: start: 20161115
  5. EMEND [Concomitant]
     Active Substance: APREPITANT
     Indication: PRODUCT USED FOR UNKNOWN INDICATION
     Dosage: ONGOING = CHECKED
     Route: 065
     Dates: start: 20161115
  6. TRASTUZUMAB EMTANSINE [Suspect]
     Active Substance: ADO-TRASTUZUMAB EMTANSINE
     Indication: HER-2 POSITIVE BREAST CANCER
     Dosage: MOST RECENT DOSE PRIOR TO THE EVENT: 21/AUG/2017MOST RECENT DOSE PRIOR TO THE EVENT: 22/MAY/2017
     Route: 042
     Dates: start: 20161114, end: 20170522
  7. MEXALEN [Concomitant]
     Active Substance: ACETAMINOPHEN
     Indication: METASTASES TO CENTRAL NERVOUS SYSTEM
     Dosage: UNK
     Route: 065
     Dates: start: 20170609
  8. ZOFRAN [Concomitant]
     Active Substance: ONDANSETRON HYDROCHLORIDE
     Indication: PRODUCT USED FOR UNKNOWN INDICATION
     Dosage: UNK
     Route: 065
     Dates: start: 20161115
  9. TRASTUZUMAB. [Suspect]
     Active Substance: TRASTUZUMAB
     Indication: BREAST CANCER
     Dosage: 600 MG, TIW
     Route: 041
     Dates: start: 20180503
  10. FORTECORTIN [Concomitant]
     Active Substance: DEXAMETHASONE
     Indication: PRODUCT USED FOR UNKNOWN INDICATION
     Dosage: UNK
     Route: 065
     Dates: start: 20170330

REACTIONS (7)
  - Spinal pain [Recovered/Resolved]
  - Spinal pain [Not Recovered/Not Resolved]
  - Chills [Recovered/Resolved]
  - Vision blurred [Recovered/Resolved]
  - Dental fistula [Unknown]
  - Dental fistula [Recovered/Resolved]
  - Night sweats [Unknown]

NARRATIVE: CASE EVENT DATE: 20181112
